FAERS Safety Report 8504833-1 (Version None)
Quarter: 2012Q3

REPORT INFORMATION
  Report Type: 
  Country: None (occurrence: None)
  Receive Date: 20120712
  Receipt Date: 20120709
  Transmission Date: 20120928
  Serious: Yes (Hospitalization, Other)
  Sender: FDA-Public Use
  Company Number: US-AMGEN-USASP2012042412

PATIENT
  Age: 51 Year
  Sex: Female

DRUGS (1)
  1. ENBREL [Suspect]
     Indication: RHEUMATOID ARTHRITIS
     Dosage: 50 MG, QWK
     Dates: start: 20110101

REACTIONS (9)
  - ARTHRALGIA [None]
  - METASTATIC NEOPLASM [None]
  - HIP FRACTURE [None]
  - FALL [None]
  - PAIN IN EXTREMITY [None]
  - BACK PAIN [None]
  - OEDEMA PERIPHERAL [None]
  - GAIT DISTURBANCE [None]
  - JOINT SWELLING [None]
